FAERS Safety Report 21211957 (Version 2)
Quarter: 2022Q3

REPORT INFORMATION
  Report Type: Spontaneous
  Country: CA (occurrence: CA)
  Receive Date: 20220815
  Receipt Date: 20220901
  Transmission Date: 20221026
  Serious: Yes (Other)
  Sender: FDA-Public Use
  Company Number: CA-PFIZER INC-202201046067

PATIENT
  Age: 35 Year
  Sex: Female

DRUGS (1)
  1. CELECOXIB [Suspect]
     Active Substance: CELECOXIB
     Indication: Ankylosing spondylitis
     Dosage: 200 MG, DAILY (WHICH PATIENT HAS BEEN ON FOR AT LEAST 4 MONTHS)
     Route: 065

REACTIONS (7)
  - Spinal pain [Unknown]
  - Drug ineffective [Unknown]
  - Gastrointestinal disorder [Not Recovered/Not Resolved]
  - Sacroiliitis [Unknown]
  - C-reactive protein increased [Unknown]
  - Musculoskeletal stiffness [Unknown]
  - Condition aggravated [Unknown]

NARRATIVE: CASE EVENT DATE: 20220101
